FAERS Safety Report 6573479-7 (Version None)
Quarter: 2010Q1

REPORT INFORMATION
  Report Type: 
  Country: None (occurrence: None)
  Receive Date: 20100208
  Receipt Date: 20100129
  Transmission Date: 20100710
  Serious: Yes (Hospitalization)
  Sender: FDA-Public Use
  Company Number: CN-ABBOTT-10P-035-0622947-00

PATIENT
  Age: 65 Year
  Sex: Male

DRUGS (2)
  1. HYTRIN [Suspect]
     Indication: BENIGN PROSTATIC HYPERPLASIA
     Route: 048
     Dates: start: 20090101
  2. SAFFLOWER (FULUO) [Suspect]
     Indication: ARRHYTHMIA

REACTIONS (2)
  - CALCULUS BLADDER [None]
  - DYSURIA [None]
